FAERS Safety Report 9726780 (Version 2)
Quarter: 2013Q4

REPORT INFORMATION
  Report Type: Spontaneous
  Country: JP (occurrence: JP)
  Receive Date: 20131203
  Receipt Date: 20131210
  Transmission Date: 20140711
  Serious: Yes (Other)
  Sender: FDA-Public Use
  Company Number: PHHY2013JP138754

PATIENT
  Sex: 0

DRUGS (1)
  1. ZOLEDRONIC ACID [Suspect]
     Indication: METASTASES TO SPINE

REACTIONS (3)
  - Osteonecrosis of jaw [Unknown]
  - Infection [Unknown]
  - Abscess jaw [Unknown]
